FAERS Safety Report 21027921 (Version 1)
Quarter: 2022Q2

REPORT INFORMATION
  Report Type: Spontaneous
  Country: US (occurrence: None)
  Receive Date: 20220630
  Receipt Date: 20220630
  Transmission Date: 20220720
  Serious: Yes (unspecified)
  Sender: FDA-Public Use
  Company Number: None

PATIENT
  Age: 47 Year
  Sex: Female
  Weight: 58.05 kg

DRUGS (5)
  1. ARESTIN [Suspect]
     Active Substance: MINOCYCLINE HYDROCHLORIDE
     Indication: Gingival abscess
     Dosage: OTHER ROUTE : INJECTED INTO GUM;?
     Route: 050
     Dates: start: 20220620
  2. VALSARTAN [Concomitant]
     Active Substance: VALSARTAN
  3. MAGNESIUM [Concomitant]
     Active Substance: MAGNESIUM
  4. AZO Cranberry Tabs [Concomitant]
  5. AZO Feminine Probiotic [Concomitant]

REACTIONS (4)
  - Implant site swelling [None]
  - Implant site pain [None]
  - Swelling [None]
  - Headache [None]

NARRATIVE: CASE EVENT DATE: 20220620
